FAERS Safety Report 21060682 (Version 13)
Quarter: 2022Q4

REPORT INFORMATION
  Report Type: Report from Study
  Country: CN (occurrence: None)
  Receive Date: 20220708
  Receipt Date: 20221123
  Transmission Date: 20230113
  Serious: Yes (Hospitalization)
  Sender: FDA-Public Use
  Company Number: CN-Eisai Medical Research-EC-2022-118702

PATIENT
  Age: 60 Year
  Sex: Male
  Weight: 78 kg

DRUGS (8)
  1. LENVATINIB [Suspect]
     Active Substance: LENVATINIB
     Indication: Renal cell carcinoma
     Route: 048
     Dates: start: 20220601, end: 20220627
  2. BELZUTIFAN [Suspect]
     Active Substance: BELZUTIFAN
     Indication: Renal cell carcinoma
     Dosage: STARTING DOSE OF 120 MG
     Route: 048
     Dates: start: 20220511, end: 20220627
  3. BELZUTIFAN [Suspect]
     Active Substance: BELZUTIFAN
     Route: 048
     Dates: start: 20220628, end: 20220628
  4. ACARBOSE [Concomitant]
     Active Substance: ACARBOSE
     Dates: start: 202001
  5. METFORMIN [Concomitant]
     Active Substance: METFORMIN HYDROCHLORIDE
     Dates: start: 202001
  6. TELMISARTAN [Concomitant]
     Active Substance: TELMISARTAN
     Dates: start: 20220604
  7. ATORVASTATIN CALCIUM [Concomitant]
     Active Substance: ATORVASTATIN CALCIUM
     Dates: start: 20220608
  8. GLIQUIDONE [Concomitant]
     Active Substance: GLIQUIDONE
     Dates: start: 202001

REACTIONS (1)
  - Cardiac failure [Recovering/Resolving]

NARRATIVE: CASE EVENT DATE: 20220627
